FAERS Safety Report 5190206-9 (Version None)
Quarter: 2006Q4

REPORT INFORMATION
  Report Type: 
  Country: None (occurrence: None)
  Receive Date: 20061222
  Receipt Date: 20060927
  Transmission Date: 20070319
  Serious: No
  Sender: FDA-Public Use
  Company Number: US-AMGEN-US194846

PATIENT
  Sex: Female

DRUGS (24)
  1. ARANESP [Suspect]
     Indication: RENAL FAILURE CHRONIC
     Dates: start: 20060609
  2. ACTOS [Concomitant]
  3. CALCITRIOL [Concomitant]
  4. METOPROLOL SUCCINATE [Concomitant]
  5. ASPIRIN [Concomitant]
  6. PRAVACHOL [Concomitant]
  7. ACTONEL [Concomitant]
  8. GABAPENTIN [Concomitant]
  9. FERROUS SULFATE TAB [Concomitant]
  10. CALCIUM CITRATE [Concomitant]
  11. CHROMIUM [Concomitant]
  12. COENZYME Q10 [Concomitant]
  13. FISH OIL [Concomitant]
  14. MAGNESIUM [Concomitant]
  15. VYTORIN [Concomitant]
  16. VITAMIN CAP [Concomitant]
  17. PLAVIX [Concomitant]
  18. COZAAR [Concomitant]
  19. ASCORBIC ACID [Concomitant]
  20. VITAMIN B COMPLEX CAP [Concomitant]
  21. VITAMIN E [Concomitant]
  22. LASIX [Concomitant]
  23. NOVOLOG [Concomitant]
  24. LANTUS [Concomitant]

REACTIONS (2)
  - INJECTION SITE PRURITUS [None]
  - INJECTION SITE RASH [None]
